FAERS Safety Report 12307996 (Version 1)
Quarter: 2016Q2

REPORT INFORMATION
  Report Type: Spontaneous
  Country: US (occurrence: US)
  Receive Date: 20160426
  Receipt Date: 20160426
  Transmission Date: 20160815
  Serious: No
  Sender: FDA-Public Use
  Company Number: US-ALKERMES INC.-ALK-2016-000266

PATIENT

DRUGS (3)
  1. VIVITROL [Suspect]
     Active Substance: NALTREXONE
     Indication: SUBSTANCE ABUSE
     Dosage: 380 MG, UNK
     Route: 030
     Dates: start: 20151008
  2. VIVITROL [Suspect]
     Active Substance: NALTREXONE
     Indication: DRUG DEPENDENCE
  3. VIVITROL [Suspect]
     Active Substance: NALTREXONE
     Indication: ILL-DEFINED DISORDER
     Dosage: 380 MG, Q4WK
     Route: 030
     Dates: start: 201412, end: 2015

REACTIONS (4)
  - Gastrointestinal disorder [Unknown]
  - Drug abuse [Unknown]
  - Drug dependence [Recovered/Resolved]
  - Off label use [Unknown]

NARRATIVE: CASE EVENT DATE: 201412
